FAERS Safety Report 4794975-9 (Version None)
Quarter: 2005Q3

REPORT INFORMATION
  Report Type: 
  Country: None (occurrence: None)
  Receive Date: 20050919
  Receipt Date: 20050527
  Transmission Date: 20060218
  Serious: No
  Sender: FDA-Public Use
  Company Number: US-JNJFOC-20050600259

PATIENT
  Sex: Female

DRUGS (2)
  1. ORTHO TRI-CYCLEN LO [Suspect]
     Indication: CONTRACEPTION
     Dosage: 1 DOSE(S), 1 IN 1 DAY, ORAL
     Route: 048
  2. ALLEGRA [Suspect]
     Indication: MULTIPLE ALLERGIES

REACTIONS (3)
  - DRUG INTERACTION [None]
  - LACRIMATION INCREASED [None]
  - THROAT IRRITATION [None]
